FAERS Safety Report 4691368-X (Version None)
Quarter: 2005Q2

REPORT INFORMATION
  Report Type: 
  Country: None (occurrence: None)
  Receive Date: 20050615
  Receipt Date: 20050531
  Transmission Date: 20051028
  Serious: Yes (Other)
  Sender: FDA-Public Use
  Company Number: 8010795

PATIENT
  Age: 20 Year
  Sex: Female

DRUGS (5)
  1. KEPPRA [Suspect]
     Indication: COMPLEX PARTIAL SEIZURES
     Dosage: 500 MG /D PO
     Route: 048
     Dates: start: 20050401, end: 20050101
  2. KEPPRA [Suspect]
     Indication: COMPLEX PARTIAL SEIZURES
     Dosage: 500 MG 2/D PO
     Route: 048
     Dates: start: 20050101, end: 20050501
  3. KEPPRA [Suspect]
     Indication: COMPLEX PARTIAL SEIZURES
     Dosage: 2500 MG /D PO
     Route: 048
     Dates: start: 20050501, end: 20050530
  4. KEPPRA [Suspect]
     Indication: COMPLEX PARTIAL SEIZURES
     Dosage: 500 MG 2/D PO
     Route: 048
     Dates: start: 20050531
  5. PHENOBARBITAL [Concomitant]

REACTIONS (3)
  - CONTUSION [None]
  - EPISTAXIS [None]
  - THROMBOCYTOPENIA [None]
